FAERS Safety Report 6764293-8 (Version None)
Quarter: 2010Q2

REPORT INFORMATION
  Report Type: 
  Country: None (occurrence: None)
  Receive Date: 20100610
  Receipt Date: 20100601
  Transmission Date: 20101027
  Serious: Yes (Disabling)
  Sender: FDA-Public Use
  Company Number: CA-MERCK-1006USA00221

PATIENT
  Age: 78 Year
  Sex: Female
  Weight: 71 kg

DRUGS (11)
  1. JANUVIA [Suspect]
     Route: 048
  2. TYLENOL [Concomitant]
     Route: 048
  3. ASPIRIN [Concomitant]
     Route: 048
  4. CALCIUM (UNSPECIFIED) [Concomitant]
     Route: 048
  5. REFRESH PLUS LUBRICANT EYE DROPS [Concomitant]
     Route: 065
  6. DIABETA [Concomitant]
     Route: 065
  7. VITAMIN D (UNSPECIFIED) [Concomitant]
     Route: 048
  8. LOZIDE [Concomitant]
     Route: 048
  9. ATIVAN [Concomitant]
     Route: 048
  10. PROPRANOLOL HYDROCHLORIDE [Concomitant]
     Route: 048
  11. CRESTOR [Concomitant]
     Route: 048

REACTIONS (13)
  - DYSPHAGIA [None]
  - DYSPNOEA [None]
  - DYSURIA [None]
  - ERYTHEMA [None]
  - HYPERTENSION [None]
  - HYPOACUSIS [None]
  - LIP EXFOLIATION [None]
  - LOCALISED OEDEMA [None]
  - OEDEMA PERIPHERAL [None]
  - OROPHARYNGEAL BLISTERING [None]
  - SWELLING FACE [None]
  - VISION BLURRED [None]
  - WEIGHT INCREASED [None]
